FAERS Safety Report 6574813-4 (Version None)
Quarter: 2010Q1

REPORT INFORMATION
  Report Type: 
  Country: None (occurrence: None)
  Receive Date: 20100209
  Receipt Date: 20100204
  Transmission Date: 20100710
  Serious: Yes (Death, Hospitalization)
  Sender: FDA-Public Use
  Company Number: PHHO2010BR01516

PATIENT
  Sex: Male
  Weight: 71 kg

DRUGS (5)
  1. TASIGNA [Suspect]
     Indication: ACUTE LYMPHOCYTIC LEUKAEMIA
     Dosage: 800MG
     Route: 048
     Dates: start: 20091001, end: 20100112
  2. METHOTREXATE [Suspect]
     Dosage: 2G
     Route: 042
     Dates: start: 20100104, end: 20100104
  3. CYTARABINE [Suspect]
     Dosage: 2G
     Route: 042
     Dates: start: 20100108, end: 20100108
  4. VINCRISTINE [Suspect]
     Dosage: 2G
     Route: 042
     Dates: start: 20100104, end: 20100104
  5. DEXAMETHASONE 0.5MG TAB [Concomitant]
     Dosage: 20MG
     Route: 042
     Dates: start: 20100104, end: 20100108

REACTIONS (8)
  - ANAEMIA [None]
  - DERMATITIS EXFOLIATIVE [None]
  - DRUG TOXICITY [None]
  - NEUTROPENIA [None]
  - PYREXIA [None]
  - RESPIRATORY FAILURE [None]
  - SEPSIS [None]
  - SEPTIC SHOCK [None]
